FAERS Safety Report 18665131 (Version 25)
Quarter: 2024Q2

REPORT INFORMATION
  Report Type: Report from Study
  Country: CO (occurrence: CO)
  Receive Date: 20201225
  Receipt Date: 20240621
  Transmission Date: 20240715
  Serious: Yes (Life-Threatening, Other)
  Sender: FDA-Public Use
  Company Number: CO-TAKEDA-CO202010107

PATIENT
  Age: 58 Year
  Sex: Male
  Weight: 82 kg

DRUGS (30)
  1. ICATIBANT [Suspect]
     Active Substance: ICATIBANT ACETATE
     Indication: Hereditary angioedema
     Dosage: UNK UNK, Q6HR
     Route: 058
     Dates: start: 2016
  2. ICATIBANT [Suspect]
     Active Substance: ICATIBANT ACETATE
     Indication: Hereditary angioedema
     Dosage: UNK UNK, Q6HR
     Route: 058
     Dates: start: 2016
  3. ICATIBANT [Suspect]
     Active Substance: ICATIBANT ACETATE
     Dosage: 30 MILLIGRAM
     Route: 058
     Dates: start: 20200419, end: 20200419
  4. ICATIBANT [Suspect]
     Active Substance: ICATIBANT ACETATE
     Dosage: 30 MILLIGRAM
     Route: 058
     Dates: start: 20200419, end: 20200419
  5. ICATIBANT [Suspect]
     Active Substance: ICATIBANT ACETATE
     Dosage: 30 MILLIGRAM, Q6HR
     Route: 058
     Dates: start: 20200514
  6. ICATIBANT [Suspect]
     Active Substance: ICATIBANT ACETATE
     Dosage: 30 MILLIGRAM, Q6HR
     Route: 058
     Dates: start: 20200514
  7. ICATIBANT [Suspect]
     Active Substance: ICATIBANT ACETATE
     Dosage: 30 MILLIGRAM, Q6HR
     Route: 058
     Dates: start: 20200807, end: 20200807
  8. ICATIBANT [Suspect]
     Active Substance: ICATIBANT ACETATE
     Dosage: 30 MILLIGRAM, Q6HR
     Route: 058
     Dates: start: 20200807, end: 20200807
  9. ICATIBANT [Suspect]
     Active Substance: ICATIBANT ACETATE
     Dosage: 30 MILLIGRAM
     Route: 058
     Dates: start: 20200903, end: 20200903
  10. ICATIBANT [Suspect]
     Active Substance: ICATIBANT ACETATE
     Dosage: 30 MILLIGRAM
     Route: 058
     Dates: start: 20200903, end: 20200903
  11. ICATIBANT [Suspect]
     Active Substance: ICATIBANT ACETATE
     Dosage: 30 MILLIGRAM, Q6HR
     Route: 058
     Dates: start: 20200910
  12. ICATIBANT [Suspect]
     Active Substance: ICATIBANT ACETATE
     Dosage: 30 MILLIGRAM, Q6HR
     Route: 058
     Dates: start: 20200910
  13. ICATIBANT [Suspect]
     Active Substance: ICATIBANT ACETATE
     Dosage: 30 MILLIGRAM, Q6HR
     Route: 058
  14. ICATIBANT [Suspect]
     Active Substance: ICATIBANT ACETATE
     Dosage: 30 MILLIGRAM, Q6HR
     Route: 058
  15. ICATIBANT [Suspect]
     Active Substance: ICATIBANT ACETATE
     Dosage: UNK UNK, Q6HR
     Route: 065
  16. ICATIBANT [Suspect]
     Active Substance: ICATIBANT ACETATE
     Dosage: UNK UNK, Q6HR
     Route: 065
  17. ICATIBANT [Suspect]
     Active Substance: ICATIBANT ACETATE
     Dosage: 30 MILLIGRAM, Q6HR
     Route: 058
  18. ICATIBANT [Suspect]
     Active Substance: ICATIBANT ACETATE
     Dosage: 30 MILLIGRAM, Q6HR
     Route: 058
  19. ICATIBANT [Suspect]
     Active Substance: ICATIBANT ACETATE
     Dosage: 30 MILLIGRAM, Q6HR
     Route: 058
  20. ICATIBANT [Suspect]
     Active Substance: ICATIBANT ACETATE
     Dosage: 30 MILLIGRAM, Q6HR
     Route: 058
  21. ICATIBANT [Suspect]
     Active Substance: ICATIBANT ACETATE
     Dosage: 30 MILLIGRAM, Q6HR
     Route: 058
  22. ICATIBANT [Suspect]
     Active Substance: ICATIBANT ACETATE
     Dosage: 30 MILLIGRAM, Q6HR
     Route: 058
  23. ICATIBANT [Suspect]
     Active Substance: ICATIBANT ACETATE
     Dosage: 1 DOSAGE FORM
     Route: 065
  24. ICATIBANT [Suspect]
     Active Substance: ICATIBANT ACETATE
     Dosage: 1 DOSAGE FORM
     Route: 065
  25. ICATIBANT [Suspect]
     Active Substance: ICATIBANT ACETATE
     Dosage: UNK
     Route: 058
  26. ICATIBANT [Suspect]
     Active Substance: ICATIBANT ACETATE
     Dosage: UNK
     Route: 058
  27. TAKHZYRO [Suspect]
     Active Substance: LANADELUMAB-FLYO
     Indication: Hereditary angioedema
     Dosage: UNK
     Route: 058
     Dates: start: 20210426
  28. TAKHZYRO [Suspect]
     Active Substance: LANADELUMAB-FLYO
     Dosage: 1 DOSAGE FORM
     Route: 058
  29. TAKHZYRO [Suspect]
     Active Substance: LANADELUMAB-FLYO
     Dosage: UNK
     Route: 058
  30. TAKHZYRO [Suspect]
     Active Substance: LANADELUMAB-FLYO
     Dosage: UNK
     Route: 058

REACTIONS (5)
  - Hereditary angioedema [Recovered/Resolved]
  - COVID-19 [Recovering/Resolving]
  - Product dose omission issue [Unknown]
  - Product prescribing error [Not Recovered/Not Resolved]
  - Inappropriate schedule of product administration [Not Recovered/Not Resolved]

NARRATIVE: CASE EVENT DATE: 20200319
